FAERS Safety Report 4500152-9 (Version None)
Quarter: 2004Q4

REPORT INFORMATION
  Report Type: 
  Country: None (occurrence: None)
  Receive Date: 20041112
  Receipt Date: 20041101
  Transmission Date: 20050328
  Serious: Yes (Other)
  Sender: FDA-Public Use
  Company Number: DE-ROCHE-385081

PATIENT
  Age: 58 Year
  Sex: Male
  Weight: 66 kg

DRUGS (7)
  1. CELLCEPT [Suspect]
     Route: 065
     Dates: start: 20040615
  2. ARANESP [Suspect]
     Route: 058
     Dates: start: 20031015, end: 20031115
  3. ARANESP [Suspect]
     Route: 058
     Dates: start: 20040415
  4. FUROSEMIDE [Concomitant]
     Dates: start: 19970615
  5. CYCLOSPORINE [Concomitant]
     Dates: start: 19970615
  6. CLONIDINE HCL [Concomitant]
     Dates: start: 19970615
  7. PRAVASTATIN SODIUM [Concomitant]
     Dates: start: 19970615

REACTIONS (6)
  - ACIDOSIS [None]
  - ANAEMIA [None]
  - DRUG EFFECT DECREASED [None]
  - IRON DEFICIENCY [None]
  - MALNUTRITION [None]
  - REFUSAL OF TREATMENT BY PATIENT [None]
